APPROVED DRUG PRODUCT: EMTRICITABINE
Active Ingredient: EMTRICITABINE
Strength: 200MG
Dosage Form/Route: CAPSULE;ORAL
Application: A091168 | Product #001 | TE Code: AB
Applicant: CIPLA LTD
Approved: Jul 2, 2018 | RLD: No | RS: No | Type: RX